FAERS Safety Report 15352417 (Version 1)
Quarter: 2018Q3

REPORT INFORMATION
  Report Type: Spontaneous
  Country: AU (occurrence: AU)
  Receive Date: 20180905
  Receipt Date: 20180905
  Transmission Date: 20181010
  Serious: Yes (Other)
  Sender: FDA-Public Use
  Company Number: AU-GLAXOSMITHKLINE-AU2018GSK157977

PATIENT

DRUGS (1)
  1. TAFENOQUINE [Suspect]
     Active Substance: TAFENOQUINE
     Indication: PRODUCT USED FOR UNKNOWN INDICATION
     Dosage: UNK

REACTIONS (12)
  - Depression [Unknown]
  - Mental disorder [Unknown]
  - Depressed mood [Unknown]
  - Malaise [Unknown]
  - Anxiety [Unknown]
  - Frustration tolerance decreased [Unknown]
  - Mood swings [Unknown]
  - Headache [Unknown]
  - Nausea [Unknown]
  - Anger [Unknown]
  - Adjustment disorder [Unknown]
  - Loss of consciousness [Unknown]

NARRATIVE: CASE EVENT DATE: 199904
